FAERS Safety Report 15854455 (Version 2)
Quarter: 2019Q2

REPORT INFORMATION
  Report Type: Report from Study
  Country: DE (occurrence: DE)
  Receive Date: 20190122
  Receipt Date: 20190513
  Transmission Date: 20190711
  Serious: Yes (Hospitalization, Other)
  Sender: FDA-Public Use
  Company Number: PHHY2018DE177182

PATIENT
  Age: 45 Year
  Sex: Male

DRUGS (1)
  1. ENTRESTO [Suspect]
     Active Substance: SACUBITRIL\VALSARTAN
     Indication: CARDIAC FAILURE
     Dosage: 0.5 DF (50 MG), SEVEN TIMES
     Route: 048
     Dates: start: 20170910

REACTIONS (6)
  - Sarcoidosis [Unknown]
  - Myocarditis [Unknown]
  - Myocarditis [Recovered/Resolved with Sequelae]
  - Wrong technique in product usage process [Unknown]
  - Cardiac failure [Recovered/Resolved with Sequelae]
  - Underdose [Unknown]

NARRATIVE: CASE EVENT DATE: 20171120
